FAERS Safety Report 6983074-3 (Version None)
Quarter: 2010Q3

REPORT INFORMATION
  Report Type: 
  Country: None (occurrence: None)
  Receive Date: 20100914
  Receipt Date: 20100606
  Transmission Date: 20110219
  Serious: Yes (Other)
  Sender: FDA-Public Use
  Company Number: US-PFIZER INC-2010070807

PATIENT
  Sex: Female
  Weight: 73.469 kg

DRUGS (7)
  1. LYRICA [Suspect]
     Indication: NEURALGIA
     Dosage: 75 MG, DAILY
     Route: 048
     Dates: start: 20100605, end: 20100605
  2. LUNESTA [Suspect]
     Indication: SLEEP DISORDER
     Dosage: 3 MG, DAILY
     Route: 048
     Dates: start: 20100605
  3. NITROFURANTOIN [Concomitant]
     Indication: KIDNEY INFECTION
     Dosage: 100 MG, 2X/DAY
  4. MORPHINE SULFATE [Concomitant]
     Indication: PAIN
     Dosage: 30 MG, EVERY 8 HRS
     Route: 048
  5. METHOCARBAMOL [Concomitant]
     Indication: MUSCLE RELAXANT THERAPY
     Dosage: 1000 MG, EVERY 8 HRS
  6. GABAPENTIN [Concomitant]
     Indication: NEURALGIA
     Dosage: 300 MG, 3X/DAY
  7. OXYCODONE [Concomitant]
     Dosage: 15 MG, EVERY 4 HRS

REACTIONS (3)
  - DRUG INEFFECTIVE [None]
  - INSOMNIA [None]
  - SWELLING FACE [None]
